FAERS Safety Report 5975182-0 (Version None)
Quarter: 2008Q4

REPORT INFORMATION
  Report Type: 
  Country: None (occurrence: None)
  Receive Date: 20081202
  Receipt Date: 20080801
  Transmission Date: 20090506
  Serious: No
  Sender: FDA-Public Use
  Company Number: US-ABBOTT-08P-163-0467814-00

PATIENT
  Sex: Female

DRUGS (1)
  1. LUPRON DEPOT [Suspect]
     Indication: DRUG USE FOR UNKNOWN INDICATION
     Dosage: 4 MONTH INJECTION
     Route: 050

REACTIONS (1)
  - RHABDOMYOLYSIS [None]
